FAERS Safety Report 10510915 (Version 1)
Quarter: 2014Q3

REPORT INFORMATION
  Report Type: Spontaneous
  Country: US (occurrence: None)
  Receive Date: 20140926
  Receipt Date: 20140926
  Transmission Date: 20150326
  Serious: No
  Sender: FDA-Public Use
  Company Number: 1000069669

PATIENT
  Age: 50 Year
  Sex: Female

DRUGS (2)
  1. MVI (VITAMINS NOS) [Concomitant]
  2. LINZESS [Suspect]
     Active Substance: LINACLOTIDE
     Indication: CONSTIPATION
     Route: 048
     Dates: start: 201407

REACTIONS (3)
  - Abdominal distension [None]
  - Decreased appetite [None]
  - Eructation [None]

NARRATIVE: CASE EVENT DATE: 201407
